FAERS Safety Report 8611732-3 (Version None)
Quarter: 2012Q3

REPORT INFORMATION
  Report Type: 
  Country: None (occurrence: None)
  Receive Date: 20120822
  Receipt Date: 20120817
  Transmission Date: 20120928
  Serious: Yes (Death)
  Sender: FDA-Public Use
  Company Number: DE-ROCHE-1093483

PATIENT
  Sex: Male

DRUGS (9)
  1. GOLIMUMAB [Suspect]
     Indication: POLYARTHRITIS
     Dates: start: 20110301, end: 20110801
  2. SULFASALAZINE [Suspect]
     Indication: POLYARTHRITIS
     Dates: start: 20090701, end: 20110301
  3. ABATACEPT [Suspect]
     Indication: POLYARTHRITIS
     Dates: start: 20071201, end: 20080601
  4. ANAKINRA [Suspect]
     Indication: POLYARTHRITIS
     Dates: start: 20080801, end: 20081001
  5. ROACTEMRA [Suspect]
     Indication: POLYARTHRITIS
     Dates: start: 20090301, end: 20090601
  6. METHOTREXATE [Suspect]
     Indication: POLYARTHRITIS
     Route: 051
     Dates: start: 20031101, end: 20080901
  7. METHOTREXATE [Suspect]
     Route: 051
     Dates: start: 20090501
  8. CERTOLIZUMAB PEGOL [Suspect]
     Indication: POLYARTHRITIS
     Dates: start: 20110901, end: 20111001
  9. ADALIMUMAB [Suspect]
     Indication: POLYARTHRITIS
     Dates: start: 20060801, end: 20070101

REACTIONS (1)
  - METASTATIC BRONCHIAL CARCINOMA [None]
